FAERS Safety Report 9695190 (Version 1)
Quarter: 2013Q4

REPORT INFORMATION
  Report Type: Report from Study
  Country: US (occurrence: US)
  Receive Date: 20131119
  Receipt Date: 20131119
  Transmission Date: 20140711
  Serious: Yes (Disabling, Other)
  Sender: FDA-Public Use
  Company Number: US-JNJFOC-20131106969

PATIENT
  Sex: 0

DRUGS (12)
  1. REMICADE [Suspect]
     Indication: ANKYLOSING SPONDYLITIS
     Route: 042
     Dates: start: 201209
  2. METHOTREXATE [Concomitant]
     Route: 065
  3. PREDNISONE [Concomitant]
     Route: 065
  4. RELAFEN [Concomitant]
     Route: 065
  5. AMITRIPTYLIN [Concomitant]
     Route: 065
  6. GABAPENTIN [Concomitant]
     Route: 065
  7. FIORICET [Concomitant]
     Route: 065
  8. TOPAMAX [Concomitant]
     Route: 065
  9. PROTONIX [Concomitant]
     Route: 065
  10. AMLODIPINE [Concomitant]
     Route: 065
  11. VITAMIN D [Concomitant]
     Route: 065
  12. FOLIC ACID [Concomitant]
     Route: 065

REACTIONS (4)
  - Surgery [Unknown]
  - Intervertebral disc disorder [Unknown]
  - Pain [Unknown]
  - Migraine [Unknown]
